FAERS Safety Report 9907300 (Version 4)
Quarter: 2014Q2

REPORT INFORMATION
  Report Type: Report from Study
  Country: US (occurrence: US)
  Receive Date: 20140218
  Receipt Date: 20140521
  Transmission Date: 20141212
  Serious: Yes (Life-Threatening, Hospitalization)
  Sender: FDA-Public Use
  Company Number: US-ONYX-2013-1113

PATIENT
  Age: 73 Year
  Sex: Male
  Weight: 66.9 kg

DRUGS (9)
  1. CARFILZOMIB [Suspect]
     Indication: PLASMA CELL MYELOMA
     Route: 042
     Dates: start: 20130409, end: 20130626
  2. CARFILZOMIB [Suspect]
     Route: 042
     Dates: start: 20130723
  3. LENALIDOMIDE [Concomitant]
     Indication: PLASMA CELL MYELOMA
     Route: 048
     Dates: start: 20130410
  4. LENALIDOMIDE [Concomitant]
     Route: 048
     Dates: start: 20130611, end: 20130626
  5. LENALIDOMIDE [Concomitant]
     Route: 048
     Dates: start: 20130723
  6. DEXAMETHASONE [Concomitant]
     Indication: PLASMA CELL MYELOMA
     Route: 048
  7. DEXAMETHASONE [Concomitant]
     Route: 048
     Dates: start: 20130723
  8. ASPIRIN [Concomitant]
     Indication: PRODUCT USED FOR UNKNOWN INDICATION
  9. VALTREX [Concomitant]
     Indication: PRODUCT USED FOR UNKNOWN INDICATION

REACTIONS (5)
  - Respiratory failure [Recovered/Resolved]
  - Hypotension [Recovered/Resolved]
  - Lymphopenia [Recovered/Resolved]
  - Fatigue [Recovered/Resolved]
  - Dyspnoea [Recovered/Resolved]
